FAERS Safety Report 4955030-8 (Version None)
Quarter: 2006Q1

REPORT INFORMATION
  Report Type: 
  Country: None (occurrence: None)
  Receive Date: 20060322
  Receipt Date: 20060127
  Transmission Date: 20060701
  Serious: Yes (Hospitalization, Other)
  Sender: FDA-Public Use
  Company Number: 200610549BWH

PATIENT
  Age: 46 Year
  Sex: Female
  Weight: 71.1 kg

DRUGS (10)
  1. SORAFENIB [Suspect]
     Indication: METASTATIC MALIGNANT MELANOMA
     Dosage: ORAL
     Route: 048
     Dates: start: 20060112, end: 20060125
  2. DTIC-DOME [Suspect]
     Indication: METASTATIC MALIGNANT MELANOMA
     Dosage: ONCE, INTRAVENOUS
     Route: 042
     Dates: start: 20060111
  3. EFFEXOR [Concomitant]
  4. AVALIDE [Concomitant]
  5. COMPAZINE [Concomitant]
  6. VICODIN ES [Concomitant]
  7. DILAUDID [Concomitant]
  8. AQUABID DM [Concomitant]
  9. SENOKOT [Concomitant]
  10. ZOFRAN [Concomitant]

REACTIONS (13)
  - BLOOD SODIUM DECREASED [None]
  - CEREBRAL HAEMORRHAGE [None]
  - DECREASED APPETITE [None]
  - EPISTAXIS [None]
  - EYE PAIN [None]
  - HAEMORRHAGE [None]
  - HYPERSPLENISM [None]
  - LETHARGY [None]
  - NEUTROPENIA [None]
  - PLATELET DISORDER [None]
  - THROMBOCYTOPENIA [None]
  - VOMITING [None]
  - WHITE BLOOD CELL COUNT DECREASED [None]
